FAERS Safety Report 6156737-X (Version None)
Quarter: 2009Q2

REPORT INFORMATION
  Report Type: 
  Country: None (occurrence: None)
  Receive Date: 20090413
  Receipt Date: 20090226
  Transmission Date: 20091009
  Serious: No
  Sender: FDA-Public Use
  Company Number: 2009BM000047

PATIENT
  Age: 48 Year
  Sex: Male
  Weight: 81.1939 kg

DRUGS (6)
  1. KUVAN [Suspect]
     Indication: PHENYLKETONURIA
     Dosage: 20 MG/KG;QD;PO
     Route: 048
     Dates: start: 20081110, end: 20081222
  2. LEVOTHYROXINE SODIUM [Concomitant]
  3. DIPHENHYDRAMINE HCL [Concomitant]
  4. ZYPREXA [Concomitant]
  5. CLONAZEPAM [Concomitant]
  6. VALPROIC ACID [Concomitant]

REACTIONS (1)
  - AGGRESSION [None]
